FAERS Safety Report 7112883-5 (Version None)
Quarter: 2010Q4

REPORT INFORMATION
  Report Type: 
  Country: None (occurrence: None)
  Receive Date: 20101119
  Receipt Date: 20100323
  Transmission Date: 20110411
  Serious: No
  Sender: FDA-Public Use
  Company Number: US-BRISTOL-MYERS SQUIBB COMPANY-15031016

PATIENT
  Sex: Male

DRUGS (1)
  1. AVALIDE [Suspect]

REACTIONS (2)
  - NO ADVERSE EVENT [None]
  - OVERDOSE [None]
